FAERS Safety Report 24560187 (Version 3)
Quarter: 2024Q4

REPORT INFORMATION
  Report Type: Spontaneous
  Country: US (occurrence: US)
  Receive Date: 20241029
  Receipt Date: 20241116
  Transmission Date: 20250115
  Serious: No
  Sender: AMGEN
  Company Number: US-AMGEN-USASP2024210822

PATIENT
  Age: 58 Year
  Sex: Female
  Weight: 46.259 kg

DRUGS (1)
  1. NEUPOGEN [Suspect]
     Active Substance: FILGRASTIM
     Indication: Neutropenia
     Dosage: 1.5 MICROGRAM, QD (MCG)
     Route: 058
     Dates: start: 2008

REACTIONS (6)
  - Neutrophil count decreased [Recovering/Resolving]
  - Nasopharyngitis [Unknown]
  - Vaginal infection [Unknown]
  - Product storage error [Unknown]
  - Product administration error [Unknown]
  - Drug ineffective [Unknown]

NARRATIVE: CASE EVENT DATE: 20240101
